FAERS Safety Report 24381646 (Version 3)
Quarter: 2024Q4

REPORT INFORMATION
  Report Type: Spontaneous
  Country: CA (occurrence: CA)
  Receive Date: 20241001
  Receipt Date: 20241119
  Transmission Date: 20250115
  Serious: Yes (Life-Threatening, Hospitalization, Other)
  Sender: NOVO NORDISK
  Company Number: CA-NOVOPROD-1289243

PATIENT
  Age: 64 Year
  Sex: Male
  Weight: 126 kg

DRUGS (3)
  1. OZEMPIC [Suspect]
     Active Substance: SEMAGLUTIDE
     Dosage: 1 MG, QW
     Route: 058
     Dates: start: 20240525, end: 20240904
  2. OZEMPIC [Suspect]
     Active Substance: SEMAGLUTIDE
     Indication: Type 2 diabetes mellitus
     Dosage: 0.5 MG, QW
     Route: 058
     Dates: start: 20240427
  3. COUMADIN [Suspect]
     Active Substance: WARFARIN SODIUM
     Indication: Deep vein thrombosis
     Dosage: UNK
     Dates: end: 20240904

REACTIONS (9)
  - Internal haemorrhage [Recovered/Resolved]
  - Haematuria [Recovered/Resolved]
  - Rectal haemorrhage [Recovered/Resolved]
  - Haematemesis [Recovered/Resolved]
  - Malnutrition [Unknown]
  - Overdose [Unknown]
  - International normalised ratio increased [Unknown]
  - Weight decreased [Unknown]
  - Decreased appetite [Unknown]

NARRATIVE: CASE EVENT DATE: 20240827
